FAERS Safety Report 4714881-5 (Version None)
Quarter: 2005Q3

REPORT INFORMATION
  Report Type: 
  Country: None (occurrence: None)
  Receive Date: 20050712
  Receipt Date: 20050707
  Transmission Date: 20060218
  Serious: Yes (Other)
  Sender: FDA-Public Use
  Company Number: GBWYE661712MAY05

PATIENT
  Age: 26 Year
  Sex: Male

DRUGS (2)
  1. EFFEXOR XR [Suspect]
     Indication: DEPRESSION
     Dosage: 225 MG 1X PER 1 DAY, ORAL
     Route: 048
  2. ZOPICLONE (ZOPICLONE) [Concomitant]

REACTIONS (11)
  - ANXIETY [None]
  - CONDITION AGGRAVATED [None]
  - DEPRESSED MOOD [None]
  - DIZZINESS [None]
  - ERECTILE DYSFUNCTION [None]
  - HEART RATE INCREASED [None]
  - HYPERHIDROSIS [None]
  - MENTAL IMPAIRMENT [None]
  - PALPITATIONS [None]
  - SELF-INJURIOUS IDEATION [None]
  - SOMNOLENCE [None]
